FAERS Safety Report 13400833 (Version 1)
Quarter: 2017Q2

REPORT INFORMATION
  Report Type: Spontaneous
  Country: US (occurrence: US)
  Receive Date: 20170404
  Receipt Date: 20170404
  Transmission Date: 20170830
  Serious: No
  Sender: FDA-Public Use
  Company Number: US-009507513-1703USA010118

PATIENT
  Sex: Female

DRUGS (1)
  1. BELSOMRA [Suspect]
     Active Substance: SUVOREXANT
     Indication: INSOMNIA
     Dosage: 20 MG, ONCE A DAY AT BEDTIME (HS)
     Route: 048
     Dates: start: 201609

REACTIONS (2)
  - Hallucination [Recovered/Resolved]
  - Alcohol withdrawal syndrome [Recovered/Resolved]

NARRATIVE: CASE EVENT DATE: 201609
